FAERS Safety Report 7768533-8 (Version None)
Quarter: 2011Q3

REPORT INFORMATION
  Report Type: 
  Country: None (occurrence: None)
  Receive Date: 20110922
  Receipt Date: 20100823
  Transmission Date: 20111222
  Serious: No
  Sender: FDA-Public Use
  Company Number: US-ASTRAZENECA-2010SE39909

PATIENT
  Sex: Female

DRUGS (1)
  1. SEROQUEL [Suspect]
     Dosage: 100 MG, ONE TABLET BY MOUTH FIVE TIMES DAILY.
     Route: 048

REACTIONS (2)
  - INCORRECT DOSE ADMINISTERED [None]
  - FEELING ABNORMAL [None]
